FAERS Safety Report 13999926 (Version 1)
Quarter: 2017Q3

REPORT INFORMATION
  Report Type: Spontaneous
  Country: FR (occurrence: FR)
  Receive Date: 20170922
  Receipt Date: 20170922
  Transmission Date: 20171128
  Serious: Yes (Other)
  Sender: FDA-Public Use
  Company Number: FR-TEVA-807527ROM

PATIENT
  Age: 87 Year
  Sex: Female

DRUGS (7)
  1. ESCITALOPRAM [Suspect]
     Active Substance: ESCITALOPRAM OXALATE
  2. BISOPROLOL TEVA 10 MG [Suspect]
     Active Substance: BISOPROLOL
     Dosage: 1 DOSAGE FORMS DAILY;
  3. INDAPAMIDE TEVA SANTE [Suspect]
     Active Substance: INDAPAMIDE
     Dosage: 1 DOSAGE FORMS DAILY;
  4. ESCITALOPRAM [Suspect]
     Active Substance: ESCITALOPRAM OXALATE
     Dosage: 10 MILLIGRAM DAILY;
     Dates: start: 20170911
  5. INEXIUM 40 MG [Concomitant]
     Active Substance: ESOMEPRAZOLE
  6. LERCANIDIPINE TEVA SANTE 10 MG [Suspect]
     Active Substance: LERCANIDIPINE
     Dosage: 2 DOSAGE FORMS DAILY;
  7. MIANSERINE TEVA 10 MG [Suspect]
     Active Substance: MIANSERIN
     Dosage: 1 DOSAGE FORMS DAILY;

REACTIONS (4)
  - Dissociative identity disorder [Unknown]
  - Suicidal ideation [Unknown]
  - Aggression [Unknown]
  - Dyspnoea [Unknown]

NARRATIVE: CASE EVENT DATE: 2017
